FAERS Safety Report 9434239 (Version 1)
Quarter: 2013Q3

REPORT INFORMATION
  Report Type: Spontaneous
  Country: US (occurrence: US)
  Receive Date: 20130801
  Receipt Date: 20130801
  Transmission Date: 20140515
  Serious: Yes (Other)
  Sender: FDA-Public Use
  Company Number: PHEH2013US015765

PATIENT
  Sex: 0

DRUGS (2)
  1. AFINITOR [Suspect]
     Indication: BREAST CANCER
  2. EXEMESTANE [Concomitant]
     Indication: BREAST CANCER

REACTIONS (1)
  - Pulmonary sarcoidosis [Unknown]
